FAERS Safety Report 7508787-6 (Version None)
Quarter: 2011Q2

REPORT INFORMATION
  Report Type: 
  Country: None (occurrence: None)
  Receive Date: 20110527
  Receipt Date: 20110223
  Transmission Date: 20111010
  Serious: No
  Sender: FDA-Public Use
  Company Number: A0915063A

PATIENT
  Age: 42 Year
  Sex: Female

DRUGS (2)
  1. ANTIBIOTIC [Concomitant]
  2. VENTOLIN [Suspect]
     Indication: UPPER RESPIRATORY TRACT INFECTION
     Route: 055

REACTIONS (2)
  - DRUG INEFFECTIVE [None]
  - EXPIRED DRUG ADMINISTERED [None]
